FAERS Safety Report 9165751 (Version 1)
Quarter: 2013Q1

REPORT INFORMATION
  Report Type: Spontaneous
  Country: US (occurrence: None)
  Receive Date: 20130228
  Receipt Date: 20130228
  Transmission Date: 20140127
  Serious: Yes (Life-Threatening, Hospitalization)
  Sender: FDA-Public Use
  Company Number: 2013HINLIT0025

PATIENT
  Age: 42 Year
  Sex: Male

DRUGS (10)
  1. LITHIUM (LITHIUM) UNKNOWN [Suspect]
     Dates: start: 1995
  2. METHIMAZOLE [Suspect]
     Dates: start: 2005
  3. PREVACID (PREVACID UNKNOWN [Concomitant]
  4. PERCOCET (PERCOCET) UNKNOWN [Concomitant]
  5. SEROQUEL (SEROQUEL) UNKNOWN [Concomitant]
  6. LORAZEPAM (LORAZEPAM) UNKNOWN [Concomitant]
  7. DILANTIN (DILANTIN) UNKNOWN [Concomitant]
  8. MIRAPEX (MIRAPEX) UNKNOWN [Concomitant]
  9. ZOLOFT [Concomitant]
  10. COLACE (COLACE) UNKNOWN [Concomitant]

REACTIONS (4)
  - Hyperthyroidism [None]
  - Goitre [None]
  - Respiratory distress [None]
  - Convulsion [None]
